FAERS Safety Report 6889398-2 (Version None)
Quarter: 2010Q3

REPORT INFORMATION
  Report Type: 
  Country: None (occurrence: None)
  Receive Date: 20100730
  Receipt Date: 20080219
  Transmission Date: 20110219
  Serious: No
  Sender: FDA-Public Use
  Company Number: US-PFIZER INC-2008004501

PATIENT
  Age: 40 Year
  Sex: Male
  Weight: 68.04 kg

DRUGS (1)
  1. LIPITOR [Suspect]

REACTIONS (5)
  - ABNORMAL DREAMS [None]
  - DISCOMFORT [None]
  - PAIN [None]
  - PRODUCT CONTAMINATION [None]
  - PYREXIA [None]
